FAERS Safety Report 9652886 (Version 1)
Quarter: 2013Q4

REPORT INFORMATION
  Report Type: Spontaneous
  Country: US (occurrence: None)
  Receive Date: 20131028
  Receipt Date: 20131028
  Transmission Date: 20140711
  Serious: No
  Sender: FDA-Public Use
  Company Number: None

PATIENT
  Age: 77 Year
  Sex: Female
  Weight: 74.84 kg

DRUGS (2)
  1. EVISTA [Suspect]
     Indication: BONE DISORDER
     Dosage: 1 ONCE DAILY
     Route: 048
  2. EVISTA [Suspect]
     Indication: BREAST CANCER
     Dosage: 1 ONCE DAILY
     Route: 048

REACTIONS (2)
  - Feeling hot [None]
  - Nausea [None]
